FAERS Safety Report 8512211-4 (Version None)
Quarter: 2012Q3

REPORT INFORMATION
  Report Type: 
  Country: None (occurrence: None)
  Receive Date: 20120716
  Receipt Date: 20120712
  Transmission Date: 20120928
  Serious: Yes (Life-Threatening)
  Sender: FDA-Public Use
  Company Number: SE-ASTRAZENECA-2012SE48293

PATIENT
  Age: 17 Year
  Sex: Female

DRUGS (1)
  1. SEROQUEL [Suspect]
     Indication: DEPRESSION
     Route: 048
     Dates: start: 20120405, end: 20120614

REACTIONS (4)
  - HEADACHE [None]
  - VISION BLURRED [None]
  - DIPLOPIA [None]
  - INTRACRANIAL PRESSURE INCREASED [None]
